FAERS Safety Report 8200558-0 (Version None)
Quarter: 2012Q1

REPORT INFORMATION
  Report Type: 
  Country: None (occurrence: None)
  Receive Date: 20120308
  Receipt Date: 20120227
  Transmission Date: 20120608
  Serious: Yes (Hospitalization)
  Sender: FDA-Public Use
  Company Number: 2012SP005705

PATIENT
  Sex: Male

DRUGS (4)
  1. ZOLOFT [Suspect]
     Indication: MATERNAL EXPOSURE DURING PREGNANCY
     Dosage: TRPL
     Route: 064
  2. MIRTAZAPINE [Suspect]
     Indication: MATERNAL EXPOSURE DURING PREGNANCY
     Dosage: TRPL
     Route: 064
  3. ZOLPIDEM TARTRATE [Suspect]
     Indication: MATERNAL EXPOSURE DURING PREGNANCY
     Dosage: TRPL
     Route: 062
  4. ALPRAZOLAM [Suspect]
     Indication: MATERNAL EXPOSURE DURING PREGNANCY
     Dosage: TRPL
     Route: 064

REACTIONS (6)
  - MATERNAL DRUGS AFFECTING FOETUS [None]
  - WEIGHT DECREASED [None]
  - VOMITING NEONATAL [None]
  - IRRITABILITY [None]
  - FEEDING DISORDER NEONATAL [None]
  - DRUG WITHDRAWAL SYNDROME NEONATAL [None]
